FAERS Safety Report 6001413-7 (Version None)
Quarter: 2008Q4

REPORT INFORMATION
  Report Type: 
  Country: None (occurrence: None)
  Receive Date: 20081215
  Receipt Date: 20080505
  Transmission Date: 20090506
  Serious: No
  Sender: FDA-Public Use
  Company Number: US-AMGEN-KDL277512

PATIENT
  Sex: Male

DRUGS (3)
  1. ENBREL [Suspect]
     Indication: ANKYLOSING SPONDYLITIS
     Route: 058
     Dates: start: 20080331
  2. METHOTREXATE [Concomitant]
     Dates: start: 20080201
  3. CYMBALTA [Concomitant]

REACTIONS (1)
  - FLUSHING [None]
